FAERS Safety Report 17877488 (Version 1)
Quarter: 2020Q2

REPORT INFORMATION
  Report Type: Spontaneous
  Country: US (occurrence: US)
  Receive Date: 20200609
  Receipt Date: 20200609
  Transmission Date: 20200714
  Serious: No
  Sender: FDA-Public Use
  Company Number: US-BAYER-2020-109797

PATIENT
  Age: 44 Year
  Sex: Male

DRUGS (1)
  1. KOGENATE FS [Suspect]
     Active Substance: ANTIHEMOPHILIC FACTOR, HUMAN RECOMBINANT
     Dosage: 4000 U
     Route: 042
     Dates: start: 201912

REACTIONS (2)
  - Intentional product misuse [None]
  - Product dose omission [None]

NARRATIVE: CASE EVENT DATE: 20200505
